FAERS Safety Report 5188006-9 (Version None)
Quarter: 2006Q4

REPORT INFORMATION
  Report Type: 
  Country: None (occurrence: None)
  Receive Date: 20061214
  Receipt Date: 20061130
  Transmission Date: 20070319
  Serious: Yes (Hospitalization)
  Sender: FDA-Public Use
  Company Number: JP-2006-036269

PATIENT
  Age: 69 Year
  Sex: Male

DRUGS (1)
  1. MAGNEVIST [Suspect]
     Indication: NUCLEAR MAGNETIC RESONANCE IMAGING
     Dosage: 1 DOSE
     Dates: start: 20061121, end: 20061121

REACTIONS (6)
  - BLOOD GLUCOSE DECREASED [None]
  - CHILLS [None]
  - DRUG CLEARANCE DECREASED [None]
  - INFLAMMATION [None]
  - PYREXIA [None]
  - RENAL IMPAIRMENT [None]
